FAERS Safety Report 5294001-1 (Version None)
Quarter: 2007Q1

REPORT INFORMATION
  Report Type: 
  Country: None (occurrence: None)
  Receive Date: 20070116
  Receipt Date: 20060112
  Transmission Date: 20070707
  Serious: Yes (Other)
  Sender: FDA-Public Use
  Company Number: HQWYE666030JUL04

PATIENT
  Age: 57 Year
  Sex: Female
  Weight: 80.81 kg

DRUGS (5)
  1. PREMPRO [Suspect]
     Dates: start: 19980601, end: 20020901
  2. ESTRATEST [Suspect]
  3. ESTROGENIC SUBSTANCE [Suspect]
  4. PREMARIN [Suspect]
  5. PROVERA [Suspect]

REACTIONS (1)
  - BREAST CANCER [None]
